FAERS Safety Report 8099428-0 (Version None)
Quarter: 2012Q1

REPORT INFORMATION
  Report Type: 
  Country: None (occurrence: None)
  Receive Date: 20120129
  Receipt Date: 20111004
  Transmission Date: 20120608
  Serious: Yes (Other)
  Sender: FDA-Public Use
  Company Number: US-ABBOTT-11P-163-0861553-00

PATIENT
  Sex: Female
  Weight: 72.64 kg

DRUGS (9)
  1. FISH OIL [Concomitant]
     Indication: PRODUCT USED FOR UNKNOWN INDICATION
     Dosage: DAILY
  2. DIOVAN [Concomitant]
     Indication: HYPERTENSION
     Dosage: 80MG/12.5MG DAILY
  3. VALACYCLOVIR [Concomitant]
     Indication: GENITAL HERPES
  4. HUMIRA [Suspect]
     Indication: CROHN'S DISEASE
     Route: 058
     Dates: start: 20110511, end: 20110625
  5. PROBIOTICS [Concomitant]
     Indication: PRODUCT USED FOR UNKNOWN INDICATION
     Dosage: DAILY
  6. ESTRADIOL [Concomitant]
     Indication: PRODUCT USED FOR UNKNOWN INDICATION
     Dosage: WEANING OFF OF IT
  7. VITAMIN B-12 [Concomitant]
     Indication: PRODUCT USED FOR UNKNOWN INDICATION
     Dosage: DAILY
  8. VITAMIN D [Concomitant]
     Indication: PRODUCT USED FOR UNKNOWN INDICATION
     Dosage: DAILY
  9. DANDELION ROOT [Concomitant]
     Indication: PRODUCT USED FOR UNKNOWN INDICATION
     Dosage: DAILY

REACTIONS (8)
  - ARTHROPATHY [None]
  - JOINT CONTRACTURE [None]
  - MIGRAINE [None]
  - CENTRAL NERVOUS SYSTEM LESION [None]
  - FOOT DEFORMITY [None]
  - MUSCLE SPASMS [None]
  - PAIN [None]
  - MULTIPLE SCLEROSIS [None]
